FAERS Safety Report 6423081-2 (Version None)
Quarter: 2009Q4

REPORT INFORMATION
  Report Type: 
  Country: None (occurrence: None)
  Receive Date: 20091028
  Receipt Date: 20090731
  Transmission Date: 20100525
  Serious: Yes (Other)
  Sender: FDA-Public Use
  Company Number: 2009AP003140

PATIENT
  Age: 55 Year
  Sex: Male

DRUGS (4)
  1. TICLOPIDINE HCL [Suspect]
  2. CLOPIDOGREL BISULFATE [Suspect]
  3. ACETYLSALICYLIC ACID [Concomitant]
  4. CILOSTAZOL [Concomitant]

REACTIONS (4)
  - CROSS SENSITIVITY REACTION [None]
  - DOCUMENTED HYPERSENSITIVITY TO ADMINISTERED DRUG [None]
  - PRURITUS [None]
  - RASH MACULO-PAPULAR [None]
